FAERS Safety Report 4625047-1 (Version None)
Quarter: 2005Q2

REPORT INFORMATION
  Report Type: 
  Country: None (occurrence: None)
  Receive Date: 20050401
  Receipt Date: 20050224
  Transmission Date: 20051028
  Serious: Yes (Death, Life-Threatening, Hospitalization, Disabling)
  Sender: FDA-Public Use
  Company Number: BE-BRISTOL-MYERS SQUIBB COMPANY-12875555

PATIENT
  Age: 59 Year
  Sex: Male
  Weight: 60 kg

DRUGS (5)
  1. CARBOPLATIN [Suspect]
     Indication: MESOTHELIOMA MALIGNANT
     Dosage: AUC 5
     Route: 042
     Dates: start: 20050112, end: 20050112
  2. ALIMTA [Suspect]
     Indication: MESOTHELIOMA MALIGNANT
     Route: 042
     Dates: start: 20050112, end: 20050112
  3. FOLIC ACID [Concomitant]
     Dates: start: 20041027
  4. MIXTARD HUMAN 70/30 [Concomitant]
     Indication: DIABETES MELLITUS NON-INSULIN-DEPENDENT
  5. SIPRALEXA [Concomitant]
     Indication: DEPRESSION
     Route: 048
     Dates: start: 20041201

REACTIONS (4)
  - EMPYEMA [None]
  - GENERAL PHYSICAL HEALTH DETERIORATION [None]
  - MALIGNANT NEOPLASM PROGRESSION [None]
  - VENTRICULAR DYSKINESIA [None]
